FAERS Safety Report 11693293 (Version 1)
Quarter: 2015Q4

REPORT INFORMATION
  Report Type: Spontaneous
  Country: US (occurrence: None)
  Receive Date: 20151102
  Receipt Date: 20151102
  Transmission Date: 20160304
  Serious: Yes (Other)
  Sender: FDA-Public Use
  Company Number: None

PATIENT
  Age: 51 Year
  Sex: Female
  Weight: 79.83 kg

DRUGS (2)
  1. AZITHROMYCIN [Suspect]
     Active Substance: AZITHROMYCIN ANHYDROUS
     Indication: CHLAMYDIAL INFECTION
     Dosage: AZITHROMYCIN 2 PILLS ONE TIME TAKEN BY MOUTH
     Route: 048
     Dates: start: 20151019, end: 20151019
  2. JANUMET [Concomitant]
     Active Substance: METFORMIN HYDROCHLORIDE\SITAGLIPTIN PHOSPHATE

REACTIONS (6)
  - Abdominal pain upper [None]
  - Dyspepsia [None]
  - Pruritus [None]
  - Vaginal discharge [None]
  - Fungal infection [None]
  - Dysuria [None]

NARRATIVE: CASE EVENT DATE: 20151019
